FAERS Safety Report 7185627-9 (Version None)
Quarter: 2010Q4

REPORT INFORMATION
  Report Type: 
  Country: None (occurrence: None)
  Receive Date: 20101123
  Receipt Date: 20101012
  Transmission Date: 20110411
  Serious: No
  Sender: FDA-Public Use
  Company Number: 018624

PATIENT
  Sex: Female
  Weight: 51.3 kg

DRUGS (11)
  1. CIMZIA [Suspect]
     Indication: CROHN'S DISEASE
     Dosage: (400 MG 1X/2 WEEKS SUBCUTANEOUS)
     Route: 058
     Dates: start: 20100906, end: 20100920
  2. PANTOPRAZOLE [Concomitant]
  3. ALPRAZOLAM [Concomitant]
  4. PROMETHAZINE [Concomitant]
  5. FLOVENT [Concomitant]
  6. ALBUTEROL [Concomitant]
  7. HYOSCYAMINE [Concomitant]
  8. NEBIVOLOL [Concomitant]
  9. RANITIDINE [Concomitant]
  10. VITAMIN B12 NOS [Concomitant]
  11. HYDROCODONE BITARTRATE AND ACETAMINOPHEN [Concomitant]

REACTIONS (8)
  - CONTUSION [None]
  - FATIGUE [None]
  - HEADACHE [None]
  - HYPOTENSION [None]
  - MALAISE [None]
  - PYREXIA [None]
  - URINARY TRACT INFECTION [None]
  - URTICARIA [None]
